FAERS Safety Report 6249120-X (Version None)
Quarter: 2009Q2

REPORT INFORMATION
  Report Type: 
  Country: None (occurrence: None)
  Receive Date: 20090629
  Receipt Date: 20090617
  Transmission Date: 20091009
  Serious: Yes (Other)
  Sender: FDA-Public Use
  Company Number: ES-CELGENEUS-144-21880-09061243

PATIENT

DRUGS (1)
  1. REVLIMID [Suspect]
     Indication: MULTIPLE MYELOMA
     Route: 048

REACTIONS (7)
  - CHOLECYSTECTOMY [None]
  - HAEMATOTOXICITY [None]
  - HEPATITIS B [None]
  - MULTIPLE MYELOMA [None]
  - NEPHROPATHY TOXIC [None]
  - OSTEONECROSIS [None]
  - TOXIC SKIN ERUPTION [None]
